FAERS Safety Report 6960939-X (Version None)
Quarter: 2010Q3

REPORT INFORMATION
  Report Type: 
  Country: None (occurrence: None)
  Receive Date: 20100901
  Receipt Date: 20100820
  Transmission Date: 20110219
  Serious: Yes (Other)
  Sender: FDA-Public Use
  Company Number: FR-WATSON-2010-11387

PATIENT
  Age: 55 Year
  Sex: Male

DRUGS (2)
  1. PREDNISONE (WATSON LABORATORIES) [Suspect]
     Indication: ASTHMA
     Dosage: 20 MG, DAILY
     Route: 048
  2. MASITINIB MESYLATE (AB1010) [Suspect]
     Indication: ASTHMA
     Dosage: UNK

REACTIONS (4)
  - ALLERGIC GRANULOMATOUS ANGIITIS [None]
  - CONDITION AGGRAVATED [None]
  - VASCULITIS [None]
  - WITHDRAWAL SYNDROME [None]
